FAERS Safety Report 17937197 (Version 1)
Quarter: 2020Q2

REPORT INFORMATION
  Report Type: Spontaneous
  Country: US (occurrence: US)
  Receive Date: 20200624
  Receipt Date: 20200624
  Transmission Date: 20200714
  Serious: No
  Sender: FDA-Public Use
  Company Number: US-TAKEDA-2020TUS027472

PATIENT
  Age: 62 Year
  Sex: Female

DRUGS (2)
  1. ROZEREM [Suspect]
     Active Substance: RAMELTEON
     Indication: INSOMNIA
     Dosage: UNK
     Route: 065
     Dates: start: 20200611, end: 20200617
  2. ROZEREM [Suspect]
     Active Substance: RAMELTEON
     Indication: SLEEP DEFICIT

REACTIONS (8)
  - Condition aggravated [Recovering/Resolving]
  - Disturbance in attention [Recovering/Resolving]
  - Nausea [Recovering/Resolving]
  - Gait disturbance [Recovering/Resolving]
  - Drug ineffective [Unknown]
  - Mental impairment [Recovering/Resolving]
  - Dizziness [Recovering/Resolving]
  - Somnolence [Recovering/Resolving]
